FAERS Safety Report 25175962 (Version 4)
Quarter: 2025Q3

REPORT INFORMATION
  Report Type: Spontaneous
  Country: EU (occurrence: EU)
  Receive Date: 20250409
  Receipt Date: 20250701
  Transmission Date: 20251020
  Serious: Yes (Other)
  Sender: AUROBINDO
  Company Number: EU-AUROBINDO-AUR-APL-2025-017773

PATIENT
  Age: 62 Year
  Sex: Male

DRUGS (25)
  1. ACETAMINOPHEN [Suspect]
     Active Substance: ACETAMINOPHEN
     Indication: Abdominal pain
     Route: 065
  2. FENTANYL [Suspect]
     Active Substance: FENTANYL
     Indication: Cancer pain
     Route: 065
  3. FENTANYL [Suspect]
     Active Substance: FENTANYL
     Indication: Breakthrough pain
     Route: 045
  4. FENTANYL [Suspect]
     Active Substance: FENTANYL
     Indication: Pain
  5. DIPYRONE [Suspect]
     Active Substance: DIPYRONE
     Indication: Abdominal pain
     Route: 065
  6. MORPHINE [Suspect]
     Active Substance: MORPHINE
     Indication: Cancer pain
     Dosage: 560 MILLIGRAM, ONCE A DAY
     Route: 048
  7. MORPHINE [Suspect]
     Active Substance: MORPHINE
     Indication: Breakthrough pain
     Route: 048
  8. MORPHINE [Suspect]
     Active Substance: MORPHINE
     Indication: Pain
     Dosage: 0.5 MILLIGRAM, ONCE A DAY
     Route: 065
     Dates: start: 20230118
  9. MORPHINE [Suspect]
     Active Substance: MORPHINE
     Dosage: 0.35 MILLIGRAM, ONCE A DAY
     Route: 065
  10. MORPHINE [Suspect]
     Active Substance: MORPHINE
     Route: 065
     Dates: start: 20230120
  11. METHADONE [Suspect]
     Active Substance: METHADONE HYDROCHLORIDE
     Indication: Cancer pain
     Dosage: 5 MILLIGRAM, ONCE A DAY
     Route: 048
  12. METHADONE [Suspect]
     Active Substance: METHADONE HYDROCHLORIDE
     Indication: Pain
  13. SUNITINIB [Suspect]
     Active Substance: SUNITINIB
     Indication: Renal cancer
     Dosage: 50 MILLIGRAM, ONCE A DAY
     Route: 065
     Dates: start: 202107, end: 202111
  14. MORPHINE [Suspect]
     Active Substance: MORPHINE
     Indication: Cancer pain
     Dosage: 432 MILLIGRAM, TWO TIMES A DAY
     Route: 058
  15. MORPHINE [Suspect]
     Active Substance: MORPHINE
     Indication: Pain
     Route: 058
  16. BUPIVACAINE [Concomitant]
     Active Substance: BUPIVACAINE
     Indication: Cancer pain
     Dosage: 2 MILLIGRAM, ONCE A DAY
     Route: 065
     Dates: start: 20230118
  17. BUPIVACAINE [Concomitant]
     Active Substance: BUPIVACAINE
     Dosage: 1.4 MILLIGRAM, ONCE A DAY
     Route: 065
     Dates: start: 20230118
  18. BUPIVACAINE [Concomitant]
     Active Substance: BUPIVACAINE
     Route: 065
     Dates: start: 20230120
  19. ZICONOTIDE [Concomitant]
     Active Substance: ZICONOTIDE
     Indication: Cancer pain
     Dosage: 0.7 MICROGRAM, ONCE A DAY
     Route: 037
     Dates: start: 20230118
  20. ZICONOTIDE [Concomitant]
     Active Substance: ZICONOTIDE
     Route: 065
     Dates: start: 20230125
  21. ZICONOTIDE [Concomitant]
     Active Substance: ZICONOTIDE
     Route: 065
     Dates: start: 20230125
  22. ZICONOTIDE [Concomitant]
     Active Substance: ZICONOTIDE
     Dosage: 0.49 MICROGRAM, ONCE A DAY
     Route: 065
  23. ZICONOTIDE [Concomitant]
     Active Substance: ZICONOTIDE
     Route: 037
     Dates: start: 20230120
  24. NIVOLUMAB [Concomitant]
     Active Substance: NIVOLUMAB
     Indication: Renal cancer
     Route: 065
     Dates: start: 2022
  25. METAMIZOLE [Concomitant]
     Active Substance: METAMIZOLE
     Indication: Abdominal pain
     Route: 065

REACTIONS (3)
  - Constipation [Recovered/Resolved]
  - Drug ineffective [Unknown]
  - Confusional state [Unknown]
